FAERS Safety Report 6431121-X (Version None)
Quarter: 2009Q4

REPORT INFORMATION
  Report Type: 
  Country: None (occurrence: None)
  Receive Date: 20091106
  Receipt Date: 20091102
  Transmission Date: 20100525
  Serious: Yes (Hospitalization)
  Sender: FDA-Public Use
  Company Number: TW-ROXANE LABORATORIES, INC.-2009-RO-01118RO

PATIENT
  Age: 30 Year
  Sex: Male

DRUGS (4)
  1. LAMOTRIGINE [Suspect]
     Indication: STATUS EPILEPTICUS
  2. RISPERIDONE [Suspect]
     Indication: PSYCHOTIC DISORDER DUE TO A GENERAL MEDICAL CONDITION
     Dosage: 3 MG
     Route: 048
  3. VALPROIC ACID [Suspect]
     Indication: STATUS EPILEPTICUS
     Route: 042
  4. VALPROIC ACID [Suspect]
     Dosage: 1000 MG
     Route: 048

REACTIONS (2)
  - DRUG INEFFECTIVE [None]
  - PSYCHOTIC DISORDER DUE TO A GENERAL MEDICAL CONDITION [None]
